FAERS Safety Report 19465185 (Version 1)
Quarter: 2021Q2

REPORT INFORMATION
  Report Type: Spontaneous
  Country: US (occurrence: US)
  Receive Date: 20210624
  Receipt Date: 20210624
  Transmission Date: 20210717
  Serious: Yes (Other)
  Sender: FDA-Public Use
  Company Number: US-BRACCO-2020US05426

PATIENT
  Age: 69 Year
  Sex: Female

DRUGS (1)
  1. MULTIHANCE [Suspect]
     Active Substance: GADOBENATE DIMEGLUMINE
     Indication: MAGNETIC RESONANCE IMAGING HEAD
     Dosage: 19 ML, SINGLE
     Dates: start: 20201229, end: 20201229

REACTIONS (9)
  - Altered state of consciousness [Unknown]
  - Cough [Unknown]
  - Retching [Unknown]
  - Hyperhidrosis [Unknown]
  - Malaise [Unknown]
  - Presyncope [Unknown]
  - Sneezing [Unknown]
  - Flushing [Unknown]
  - Fatigue [Unknown]

NARRATIVE: CASE EVENT DATE: 20201229
